FAERS Safety Report 11238503 (Version 3)
Quarter: 2016Q1

REPORT INFORMATION
  Report Type: Spontaneous
  Country: US (occurrence: US)
  Receive Date: 20150705
  Receipt Date: 20160205
  Transmission Date: 20160525
  Serious: Yes (Congenital Anomaly, Other)
  Sender: FDA-Public Use
  Company Number: US-APOTEX-2015AP008403

PATIENT

DRUGS (1)
  1. PAXIL [Suspect]
     Active Substance: PAROXETINE HYDROCHLORIDE
     Indication: PRODUCT USED FOR UNKNOWN INDICATION
     Dosage: UNK
     Route: 064
     Dates: start: 1995

REACTIONS (3)
  - Ventricular septal defect [Unknown]
  - Cardiac murmur [Unknown]
  - Foetal exposure during pregnancy [Unknown]
